FAERS Safety Report 7815965-5 (Version None)
Quarter: 2011Q4

REPORT INFORMATION
  Report Type: 
  Country: None (occurrence: None)
  Receive Date: 20111014
  Receipt Date: 20111010
  Transmission Date: 20120403
  Serious: Yes (Hospitalization)
  Sender: FDA-Public Use
  Company Number: US-MERCK-1107USA03606

PATIENT
  Age: 71 Year
  Sex: Female

DRUGS (11)
  1. FOSAMAX [Suspect]
     Route: 048
     Dates: start: 20040101, end: 20080101
  2. VITAMINS (UNSPECIFIED) [Concomitant]
     Route: 065
     Dates: start: 19810101
  3. MELOXICAM [Concomitant]
     Route: 065
     Dates: start: 20070101
  4. ZOCOR [Concomitant]
     Route: 048
     Dates: start: 20010101
  5. FOSAMAX [Suspect]
     Indication: OSTEOPOROSIS
     Route: 048
     Dates: start: 20030101, end: 20040101
  6. VYTORIN [Concomitant]
     Route: 048
     Dates: start: 20050101, end: 20080101
  7. SIMVASTATIN [Concomitant]
     Route: 065
     Dates: start: 20080101
  8. MS CONTIN [Concomitant]
     Route: 065
     Dates: start: 20000101
  9. DIETARY SUPPLEMENT (UNSPECIFIED) [Concomitant]
     Route: 065
     Dates: start: 20040101
  10. CALCIUM (UNSPECIFIED) [Concomitant]
     Route: 065
     Dates: start: 19810101
  11. FELDENE [Concomitant]
     Route: 065
     Dates: start: 19810101

REACTIONS (7)
  - CEREBRAL SMALL VESSEL ISCHAEMIC DISEASE [None]
  - SKIN LESION [None]
  - HYPERTENSION [None]
  - CORONARY ARTERY DISEASE [None]
  - SEPSIS [None]
  - TRANSIENT ISCHAEMIC ATTACK [None]
  - FEMUR FRACTURE [None]
